FAERS Safety Report 7559294-6 (Version None)
Quarter: 2011Q2

REPORT INFORMATION
  Report Type: 
  Country: None (occurrence: None)
  Receive Date: 20110525
  Receipt Date: 20110505
  Transmission Date: 20111010
  Serious: No
  Sender: FDA-Public Use
  Company Number: 323619

PATIENT
  Age: 50 Year
  Sex: Female

DRUGS (1)
  1. VICTOZA [Suspect]
     Indication: INSULIN RESISTANT DIABETES
     Dosage: 0.6 MG, QD, SUBCUTANEOUS
     Route: 058
     Dates: start: 20110213

REACTIONS (7)
  - CHILLS [None]
  - VOMITING [None]
  - FLATULENCE [None]
  - NAUSEA [None]
  - BACK PAIN [None]
  - HOT FLUSH [None]
  - MUSCULOSKELETAL CHEST PAIN [None]
